FAERS Safety Report 7529832-8 (Version None)
Quarter: 2011Q2

REPORT INFORMATION
  Report Type: 
  Country: None (occurrence: None)
  Receive Date: 20110607
  Receipt Date: 20110603
  Transmission Date: 20111010
  Serious: Yes (Death)
  Sender: FDA-Public Use
  Company Number: US-B.I. PHARMACEUTICALS,INC./RIDGEFIELD-2011-BP-14621BP

PATIENT
  Age: 84 Year

DRUGS (1)
  1. PRADAXA [Suspect]

REACTIONS (3)
  - RENAL FAILURE [None]
  - COAGULOPATHY [None]
  - HAEMORRHAGE [None]
